FAERS Safety Report 6498351-2 (Version None)
Quarter: 2009Q4

REPORT INFORMATION
  Report Type: 
  Country: None (occurrence: None)
  Receive Date: 20091215
  Receipt Date: 20091207
  Transmission Date: 20100525
  Serious: Yes (Other)
  Sender: FDA-Public Use
  Company Number: US-AMGEN-US376529

PATIENT
  Sex: Male
  Weight: 61 kg

DRUGS (11)
  1. PANITUMUMAB [Suspect]
     Indication: PANCREATIC CARCINOMA
     Route: 042
     Dates: start: 20090824
  2. GEMCITABINE [Suspect]
     Route: 042
     Dates: start: 20090824
  3. ERLOTINIB HYDROCHLORIDE [Suspect]
     Route: 048
     Dates: start: 20090824
  4. OXYCODONE [Concomitant]
     Route: 048
  5. ATROPINE W/DIPHENOXYLATE [Concomitant]
  6. MAGNESIUM OXIDE [Concomitant]
     Route: 048
  7. CITALOPRAM HYDROBROMIDE [Concomitant]
     Route: 048
  8. LORTAB [Concomitant]
     Route: 048
  9. POTASSIUM CHLORIDE [Concomitant]
  10. PANCREASE [Concomitant]
  11. ONDANSETRON [Concomitant]
     Route: 048

REACTIONS (1)
  - WEIGHT DECREASED [None]
